FAERS Safety Report 7985435-2 (Version None)
Quarter: 2011Q4

REPORT INFORMATION
  Report Type: 
  Country: None (occurrence: None)
  Receive Date: 20111214
  Receipt Date: 20111130
  Transmission Date: 20120403
  Serious: Yes (Other)
  Sender: FDA-Public Use
  Company Number: RU-1189248

PATIENT
  Age: 78 Year
  Sex: Female
  Weight: 90 kg

DRUGS (2)
  1. VIGAMOX [Suspect]
     Indication: INFECTION PROPHYLAXIS
     Dosage: (2 DROPS AFTER PHACOEMULSIFICATION OPHTHALMIC)
     Route: 047
     Dates: start: 20111124, end: 20111124
  2. ALCAINE [Suspect]
     Dosage: (OPHTHALMIC)
     Route: 047
     Dates: start: 20111124, end: 20111124

REACTIONS (2)
  - OFF LABEL USE [None]
  - CORNEAL EROSION [None]
